FAERS Safety Report 4795146-2 (Version None)
Quarter: 2005Q4

REPORT INFORMATION
  Report Type: 
  Country: None (occurrence: None)
  Receive Date: 20051012
  Receipt Date: 20050921
  Transmission Date: 20060501
  Serious: Yes (Hospitalization)
  Sender: FDA-Public Use
  Company Number: 2005UW13991

PATIENT

DRUGS (3)
  1. CRESTOR [Suspect]
     Dosage: MEDIUM DOSE - PROBABLY 20 MG
     Route: 048
  2. COLCHICINE [Interacting]
     Indication: GOUT
  3. UNSPECIFIED OTHER MEDICATIONS [Concomitant]

REACTIONS (2)
  - DRUG INTERACTION [None]
  - RHABDOMYOLYSIS [None]
